FAERS Safety Report 20383081 (Version 2)
Quarter: 2022Q1

REPORT INFORMATION
  Report Type: Spontaneous
  Country: UY (occurrence: UY)
  Receive Date: 20220127
  Receipt Date: 20220308
  Transmission Date: 20220423
  Serious: No
  Sender: FDA-Public Use
  Company Number: UY-PFIZER INC-202200008661

PATIENT
  Age: 6 Year
  Sex: Female

DRUGS (1)
  1. GENOTROPIN [Suspect]
     Active Substance: SOMATROPIN
     Indication: Hypopituitarism
     Dosage: 1 A 1.4 MG, 7 TIMES A WEEK
     Dates: start: 20180505

REACTIONS (3)
  - Expired device used [Unknown]
  - Device issue [Unknown]
  - Device information output issue [Unknown]
